FAERS Safety Report 5014576-7 (Version None)
Quarter: 2006Q2

REPORT INFORMATION
  Report Type: 
  Country: None (occurrence: None)
  Receive Date: 20060531
  Receipt Date: 20060327
  Transmission Date: 20061013
  Serious: Yes (Hospitalization, Other)
  Sender: FDA-Public Use
  Company Number: PHNU2006DE01487

PATIENT
  Age: 65 Year
  Sex: Male
  Weight: 85 kg

DRUGS (7)
  1. LIORESAL [Suspect]
     Indication: PARAPLEGIA
     Route: 048
  2. LIORESAL [Suspect]
     Dosage: 200 MG/DAY
     Route: 048
     Dates: start: 20060323, end: 20060325
  3. TEGRETOL [Concomitant]
     Dosage: 200 MG/DAY
     Dates: start: 20041201, end: 20060325
  4. PLAVIX [Concomitant]
     Indication: MYOCARDIAL INFARCTION
     Dosage: 75 MG/DAY
     Dates: start: 20060323
  5. ACETYLSALICYLIC ACID SRT [Concomitant]
     Indication: MYOCARDIAL INFARCTION
     Dosage: 100 MG/DAY
     Dates: start: 20060323
  6. TRANXILIUM [Concomitant]
     Indication: MYOCARDIAL INFARCTION
     Dosage: 10 MG/DAY
     Dates: start: 20060323, end: 20060325
  7. DOBUTAMINE HCL [Concomitant]
     Indication: MYOCARDIAL INFARCTION
     Dosage: 250 MG/DAY
     Route: 042
     Dates: start: 20060323

REACTIONS (7)
  - ACCIDENTAL OVERDOSE [None]
  - AGITATION [None]
  - ANXIETY [None]
  - DELIRIUM [None]
  - HALLUCINATION, AUDITORY [None]
  - RESTLESSNESS [None]
  - UNRESPONSIVE TO VERBAL STIMULI [None]
